FAERS Safety Report 6430025-6 (Version None)
Quarter: 2009Q4

REPORT INFORMATION
  Report Type: 
  Country: None (occurrence: None)
  Receive Date: 20091103
  Receipt Date: 20091019
  Transmission Date: 20100525
  Serious: Yes (Hospitalization)
  Sender: FDA-Public Use
  Company Number: 02100-JPN-04-0244

PATIENT
  Age: 77 Year
  Sex: Male
  Weight: 56 kg

DRUGS (4)
  1. PLETAL [Suspect]
     Indication: CEREBRAL INFARCTION
     Dosage: 100 MG, BID, ORAL
     Route: 048
     Dates: start: 20040811, end: 20040830
  2. MAGLAX (MAGNESIUM OXIDE) TABLET [Concomitant]
  3. ALLOPURINOL [Concomitant]
  4. SENNOSIDE (SENNOSIDE) TABLET [Concomitant]

REACTIONS (8)
  - ANAEMIA [None]
  - BLOOD UREA INCREASED [None]
  - DECREASED APPETITE [None]
  - FALL [None]
  - GASTRIC ULCER HAEMORRHAGE [None]
  - HEAD INJURY [None]
  - LACERATION [None]
  - LOSS OF CONSCIOUSNESS [None]
